FAERS Safety Report 6335437-7 (Version None)
Quarter: 2009Q3

REPORT INFORMATION
  Report Type: 
  Country: None (occurrence: None)
  Receive Date: 20090831
  Receipt Date: 20090825
  Transmission Date: 20100115
  Serious: Yes (Hospitalization)
  Sender: FDA-Public Use
  Company Number: FR-WYE-H10751909

PATIENT
  Sex: Female

DRUGS (7)
  1. CORDARONE [Suspect]
     Dosage: 200 MG BID FROM UNKN TO JUN-2009 THEN 200 MG QD FROM JUN-2009 TO 26-JUN-2009
     Route: 048
  2. CARDENSIEL [Concomitant]
     Dosage: UNSPEC
     Route: 048
  3. PREVISCAN [Concomitant]
     Dosage: UNSPEC
     Route: 048
  4. COVERSYL [Concomitant]
     Dosage: UNSPEC
     Route: 048
  5. LASIX [Concomitant]
     Dosage: UNSPEC
     Route: 048
  6. DEPAMIDE [Suspect]
     Dosage: 1800 MG QD FROM UNKN TO 18-JUN-09; 1200 MG QD FROM 19 TO 21-JUN-09; 1800 MG QD FROM 22 TO 26-JUN-09
     Route: 048
  7. LEVOTHYROX [Concomitant]
     Dosage: UNSPEC
     Route: 048

REACTIONS (4)
  - ALTERED STATE OF CONSCIOUSNESS [None]
  - CONDITION AGGRAVATED [None]
  - RENAL FAILURE CHRONIC [None]
  - TOXIC ENCEPHALOPATHY [None]
